FAERS Safety Report 20419702 (Version 2)
Quarter: 2022Q1

REPORT INFORMATION
  Report Type: Other
  Country: US (occurrence: US)
  Receive Date: 20220203
  Receipt Date: 20220316
  Transmission Date: 20220423
  Serious: No
  Sender: FDA-Public Use
  Company Number: US-NEUROCRINE BIOSCIENCES INC.-2022NBI00531

PATIENT

DRUGS (24)
  1. INGREZZA [Suspect]
     Active Substance: VALBENAZINE
     Indication: Tardive dyskinesia
     Dosage: 60 MILLIGRAM, QD
     Route: 048
     Dates: start: 20220224
  2. INGREZZA [Suspect]
     Active Substance: VALBENAZINE
     Indication: Schizophrenia
     Dosage: 80 MILLIGRAM, QD
     Route: 048
     Dates: start: 20171217, end: 20220223
  3. INGREZZA [Suspect]
     Active Substance: VALBENAZINE
     Dosage: 40 MILLIGRAM, QD
     Route: 048
     Dates: start: 20170911, end: 20171207
  4. ACETAMINOPHEN [Concomitant]
     Active Substance: ACETAMINOPHEN
     Indication: Pain
     Dosage: 325 MILLIGRAM (GIVE TWO TABLETS BY MOUTH TWO TIMES A DAY )
     Route: 048
     Dates: start: 20211028
  5. ACETAMINOPHEN [Concomitant]
     Active Substance: ACETAMINOPHEN
     Indication: Body temperature increased
     Dosage: 650 MILLIGRAM (EVERY SIX HOURS AS NEEDED)
     Route: 048
     Dates: start: 20210511
  6. ASPIRIN [Concomitant]
     Active Substance: ASPIRIN
     Indication: Prophylaxis
     Dosage: GIVE 1 TABLET BY MOUTH 1 TIME A DAY
     Route: 048
  7. VITAMIN B12 [Concomitant]
     Active Substance: CYANOCOBALAMIN
     Indication: Supplementation therapy
     Dosage: GIVE 2 TABLET BY MOUTH ONE TIME A DAY
     Route: 048
     Dates: start: 20210512
  8. PYRIDOXINE HYDROCHLORIDE [Concomitant]
     Active Substance: PYRIDOXINE HYDROCHLORIDE
     Indication: Supplementation therapy
     Dosage: 100 MILLIGRAM (GIVE 1 TABLET BY MOUTH 2 TIMES A DAY)
     Route: 048
     Dates: start: 20210512
  9. CLOZAPINE [Concomitant]
     Active Substance: CLOZAPINE
     Indication: Schizophrenia
     Dosage: 100 MILLIGRAM (GIVE 4 TABLET BY MOUTH AT BEDTIME)
     Route: 048
     Dates: start: 20210511
  10. DEPAKOTE ER [Concomitant]
     Active Substance: DIVALPROEX SODIUM
     Indication: Bipolar disorder
     Dosage: 250 MILLIGRAM (GIVE 3 TABLET BY MOUTH ONE TIME A DAY)
     Route: 048
     Dates: start: 20210512
  11. DOCUSATE SODIUM [Concomitant]
     Active Substance: DOCUSATE SODIUM
     Indication: Constipation
     Dosage: GIVE 1 TABLET BY MOUTH EVERY 8 HOURS AS NEEDED
     Route: 048
     Dates: start: 20210511
  12. DULCOLAX (BISACODYL) [Concomitant]
     Active Substance: BISACODYL
     Indication: Constipation
     Dosage: INSERT 1 SUPPOSITORY RECTALLY EVERY 24 HOURS AS NEEDED
     Route: 054
     Dates: start: 20210511
  13. ERGOCALCIFEROL [Concomitant]
     Active Substance: ERGOCALCIFEROL
     Indication: Supplementation therapy
     Dosage: GIVE 1 CAPSULE BY MOUTH ONE TIME A DAY EVERY TUESDAY
     Route: 048
     Dates: start: 20210518
  14. FISH OIL [Concomitant]
     Active Substance: FISH OIL
     Indication: Supplementation therapy
     Dosage: GIVE 4 CAPSULE BY MOUTH ONE TIME A DAY EVERY OTHER DAY
     Route: 048
     Dates: start: 20210512
  15. FOLIC ACID [Concomitant]
     Active Substance: FOLIC ACID
     Indication: Supplementation therapy
     Dosage: GIVE 1 TABLET BY MOUTH 1 TIME A DAY
     Route: 048
     Dates: start: 20210512
  16. GLYCOPYRROLATE [Concomitant]
     Active Substance: GLYCOPYRROLATE
     Indication: Gastrooesophageal reflux disease
     Dosage: GIVE 1 TABLET BY MOUTH THREE TIMES A DAY
     Route: 048
     Dates: start: 20210511
  17. LACTULOSE [Concomitant]
     Active Substance: LACTULOSE
     Indication: Constipation
     Dosage: 45 MILLILITER EVERY 24 HOURS AS NEEDED
     Route: 048
     Dates: start: 20210517
  18. LEVOTHYROXINE SODIUM [Concomitant]
     Active Substance: LEVOTHYROXINE SODIUM
     Indication: Hypothyroidism
     Dosage: GIVE 1 TABLET BY MOUTH ONE TIME A DAY
     Route: 048
     Dates: start: 20210512
  19. LIDOCAINE [Concomitant]
     Active Substance: LIDOCAINE
     Indication: Pain
     Dosage: APPLY TO LOWER BACK TOPICALLY ONE TIME A DAY FOR PAIN 12 HOURS ON, 12 HOURS OFF
     Route: 061
     Dates: start: 20211119
  20. MILK OF MAGNESIA [Concomitant]
     Active Substance: MAGNESIUM HYDROXIDE
     Indication: Constipation
     Dosage: 30 MILLILITER EVERY 24 HOURS AS NEEDED
     Route: 048
     Dates: start: 20210511
  21. MIRALAX [Concomitant]
     Active Substance: POLYETHYLENE GLYCOL 3350
     Indication: Constipation
     Dosage: GIVE 17 GRMS BY MOUTH ONE TIME A DAY
     Route: 048
     Dates: start: 20210217
  22. NYSTATIN [Concomitant]
     Active Substance: NYSTATIN
     Indication: Pain
     Dosage: APPLY FOR PAIN AREA TOPICALLY EVERY DAY AND EVENING SHIFT REDNESS
     Route: 061
     Dates: start: 20220211
  23. SALINE NASAL MIST [Concomitant]
     Indication: Nasal congestion
     Dosage: 1 SPRAY IN EACH NOSTRIL AS NEEDED FOR 3 X DAILY PRN
     Route: 045
     Dates: start: 20210806
  24. VITAMIN E [Concomitant]
     Active Substance: .ALPHA.-TOCOPHEROL
     Indication: Supplementation therapy
     Dosage: 1 CAPSULE BY MOUTH 5 TIMES A DAY
     Route: 048
     Dates: start: 20210511

REACTIONS (5)
  - SARS-CoV-2 test positive [Recovered/Resolved]
  - Cystitis [Recovered/Resolved]
  - Parkinsonism [Unknown]
  - Fatigue [Unknown]
  - Off label use [Unknown]

NARRATIVE: CASE EVENT DATE: 20220125
